FAERS Safety Report 23033414 (Version 1)
Quarter: 2023Q4

REPORT INFORMATION
  Report Type: Spontaneous
  Country: US (occurrence: None)
  Receive Date: 20231004
  Receipt Date: 20231004
  Transmission Date: 20240109
  Serious: Yes (Other)
  Sender: FDA-Public Use
  Company Number: None

PATIENT
  Age: 85 Year
  Sex: Male
  Weight: 95.25 kg

DRUGS (10)
  1. GLIPIZIDE [Suspect]
     Active Substance: GLIPIZIDE
  2. METOPROLOL [Concomitant]
     Active Substance: METOPROLOL
  3. OMEPRAZOLE [Concomitant]
     Active Substance: OMEPRAZOLE
  4. ATORVASTATIN [Concomitant]
     Active Substance: ATORVASTATIN
  5. RAMIPRIL [Concomitant]
     Active Substance: RAMIPRIL
  6. GLIPIZIDE [Concomitant]
     Active Substance: GLIPIZIDE
  7. ALLOPURINOL [Concomitant]
     Active Substance: ALLOPURINOL
  8. LEVOTHYROXINE [Concomitant]
     Active Substance: LEVOTHYROXINE
  9. FENOFIBRATE [Concomitant]
     Active Substance: FENOFIBRATE
  10. ASPIRIN [Concomitant]
     Active Substance: ASPIRIN

REACTIONS (5)
  - Renal pain [None]
  - Asthenia [None]
  - Fatigue [None]
  - Diarrhoea [None]
  - Therapy cessation [None]
